FAERS Safety Report 6215124-6 (Version None)
Quarter: 2009Q2

REPORT INFORMATION
  Report Type: 
  Country: None (occurrence: None)
  Receive Date: 20090604
  Receipt Date: 20090604
  Transmission Date: 20091009
  Serious: Yes (Other)
  Sender: FDA-Public Use
  Company Number: US-PFIZER INC-2009188086

PATIENT
  Age: 18 Year

DRUGS (4)
  1. XANAX [Suspect]
  2. LAMICTAL [Suspect]
     Indication: DEPRESSION
     Dosage: UNK
     Route: 048
  3. LAMICTAL [Suspect]
     Indication: BIPOLAR DISORDER
  4. BUPROPION HYDROCHLORIDE [Suspect]

REACTIONS (4)
  - HYPOMANIA [None]
  - INSOMNIA [None]
  - LOGORRHOEA [None]
  - PSYCHOMOTOR HYPERACTIVITY [None]
